FAERS Safety Report 8179247-7 (Version None)
Quarter: 2012Q1

REPORT INFORMATION
  Report Type: 
  Country: None (occurrence: None)
  Receive Date: 20120229
  Receipt Date: 20120229
  Transmission Date: 20120608
  Serious: No
  Sender: FDA-Public Use
  Company Number: None

PATIENT
  Age: 13 Year
  Sex: Male
  Weight: 62.4 kg

DRUGS (3)
  1. FABRAZYME [Suspect]
  2. FABRAZYME [Suspect]
     Indication: FABRY'S DISEASE
     Dosage: 60 MG EVERY 3 WEEKS IV 3-4 HS
     Route: 042
  3. FABRAZYME [Suspect]

REACTIONS (5)
  - PAIN IN EXTREMITY [None]
  - DISCOMFORT [None]
  - INFUSION RELATED REACTION [None]
  - CHILLS [None]
  - TREMOR [None]
